FAERS Safety Report 22120165 (Version 1)
Quarter: 2023Q1

REPORT INFORMATION
  Report Type: Spontaneous
  Country: US (occurrence: None)
  Receive Date: 20230321
  Receipt Date: 20230321
  Transmission Date: 20230418
  Serious: No
  Sender: FDA-Public Use
  Company Number: US-ROCHE-3185610

PATIENT
  Sex: Male
  Weight: 81.720 kg

DRUGS (1)
  1. ERIVEDGE [Suspect]
     Active Substance: VISMODEGIB
     Indication: Basal cell carcinoma
     Dosage: DAILY
     Route: 048
     Dates: start: 20220202, end: 202207

REACTIONS (4)
  - Myalgia [Unknown]
  - Arthralgia [Unknown]
  - Taste disorder [Unknown]
  - Alopecia [Unknown]
